FAERS Safety Report 22994472 (Version 2)
Quarter: 2023Q4

REPORT INFORMATION
  Report Type: Spontaneous
  Country: CA (occurrence: CA)
  Receive Date: 20230927
  Receipt Date: 20231108
  Transmission Date: 20240109
  Serious: Yes (Death, Other)
  Sender: FDA-Public Use
  Company Number: CA-BRISTOL-MYERS SQUIBB COMPANY-2023-136975

PATIENT
  Age: 40 Year
  Sex: Female
  Weight: 96 kg

DRUGS (250)
  1. ORENCIA [Suspect]
     Active Substance: ABATACEPT
     Indication: Rheumatoid arthritis
     Dosage: 365.0 DOSAGE FORMS
     Route: 042
  2. ORENCIA [Suspect]
     Active Substance: ABATACEPT
     Dosage: 365.0 DOSAGE FORMS
     Route: 042
  3. ORENCIA [Suspect]
     Active Substance: ABATACEPT
     Dosage: 365.0 DOSAGE FORMS
     Route: 042
  4. ORENCIA [Suspect]
     Active Substance: ABATACEPT
     Indication: Rheumatoid arthritis
     Dosage: 4 YEARS
     Route: 058
  5. ACETAMINOPHEN [Concomitant]
     Active Substance: ACETAMINOPHEN
     Indication: Rheumatoid arthritis
  6. ACETAMINOPHEN [Concomitant]
     Active Substance: ACETAMINOPHEN
  7. ACETAMINOPHEN\CODEINE PHOSPHATE [Concomitant]
     Active Substance: ACETAMINOPHEN\CODEINE PHOSPHATE
     Indication: Product used for unknown indication
  8. ACTEMRA [Concomitant]
     Active Substance: TOCILIZUMAB
     Indication: Rheumatoid arthritis
  9. ACTEMRA [Concomitant]
     Active Substance: TOCILIZUMAB
     Route: 058
  10. ACTEMRA [Concomitant]
     Active Substance: TOCILIZUMAB
     Route: 042
  11. ACTEMRA [Concomitant]
     Active Substance: TOCILIZUMAB
     Route: 042
  12. ACTEMRA [Concomitant]
     Active Substance: TOCILIZUMAB
     Route: 061
  13. ACTEMRA [Concomitant]
     Active Substance: TOCILIZUMAB
     Route: 042
  14. ACTEMRA [Concomitant]
     Active Substance: TOCILIZUMAB
     Route: 042
  15. ACTEMRA [Concomitant]
     Active Substance: TOCILIZUMAB
     Dosage: 8 MG/KG
     Route: 042
  16. ACTEMRA [Concomitant]
     Active Substance: TOCILIZUMAB
     Route: 016
  17. ALENDRONATE SODIUM [Concomitant]
     Active Substance: ALENDRONATE SODIUM
     Indication: Rheumatoid arthritis
     Route: 048
  18. ALENDRONATE SODIUM [Concomitant]
     Active Substance: ALENDRONATE SODIUM
     Route: 016
  19. ALENDRONATE SODIUM [Concomitant]
     Active Substance: ALENDRONATE SODIUM
     Route: 005
  20. PREDNISONE [Concomitant]
     Active Substance: PREDNISONE
     Indication: Rheumatoid arthritis
     Route: 048
  21. PREDNISONE [Concomitant]
     Active Substance: PREDNISONE
     Route: 048
  22. PREDNISONE [Concomitant]
     Active Substance: PREDNISONE
     Route: 048
  23. PREDNISONE [Concomitant]
     Active Substance: PREDNISONE
     Route: 048
  24. PREDNISONE [Concomitant]
     Active Substance: PREDNISONE
     Route: 048
  25. PREDNISONE [Concomitant]
     Active Substance: PREDNISONE
  26. APREMILAST [Concomitant]
     Active Substance: APREMILAST
     Indication: Rheumatoid arthritis
  27. APREMILAST [Concomitant]
     Active Substance: APREMILAST
     Dosage: 2 EVERY 1 DAY
  28. APREMILAST [Concomitant]
     Active Substance: APREMILAST
  29. ARAVA [Concomitant]
     Active Substance: LEFLUNOMIDE
     Indication: Rheumatoid arthritis
     Route: 048
  30. ARAVA [Concomitant]
     Active Substance: LEFLUNOMIDE
     Route: 005
  31. ARAVA [Concomitant]
     Active Substance: LEFLUNOMIDE
  32. ARAVA [Concomitant]
     Active Substance: LEFLUNOMIDE
     Route: 048
  33. CETIRIZINE HYDROCHLORIDE [Concomitant]
     Active Substance: CETIRIZINE HYDROCHLORIDE
     Indication: Rheumatoid arthritis
  34. CETIRIZINE HYDROCHLORIDE [Concomitant]
     Active Substance: CETIRIZINE HYDROCHLORIDE
     Route: 048
  35. CETIRIZINE HYDROCHLORIDE [Concomitant]
     Active Substance: CETIRIZINE HYDROCHLORIDE
  36. CETIRIZINE HYDROCHLORIDE [Concomitant]
     Active Substance: CETIRIZINE HYDROCHLORIDE
     Route: 048
  37. CETIRIZINE HYDROCHLORIDE [Concomitant]
     Active Substance: CETIRIZINE HYDROCHLORIDE
  38. CETIRIZINE HYDROCHLORIDE [Concomitant]
     Active Substance: CETIRIZINE HYDROCHLORIDE
  39. CETIRIZINE HYDROCHLORIDE [Concomitant]
     Active Substance: CETIRIZINE HYDROCHLORIDE
     Route: 048
  40. CETIRIZINE HYDROCHLORIDE [Concomitant]
     Active Substance: CETIRIZINE HYDROCHLORIDE
  41. CETIRIZINE HYDROCHLORIDE [Concomitant]
     Active Substance: CETIRIZINE HYDROCHLORIDE
     Route: 016
  42. CETIRIZINE HYDROCHLORIDE [Concomitant]
     Active Substance: CETIRIZINE HYDROCHLORIDE
  43. CIMZIA [Concomitant]
     Active Substance: CERTOLIZUMAB PEGOL
     Indication: Rheumatoid arthritis
     Route: 058
  44. CIMZIA [Concomitant]
     Active Substance: CERTOLIZUMAB PEGOL
     Indication: Psoriasis
     Route: 005
  45. CIMZIA [Concomitant]
     Active Substance: CERTOLIZUMAB PEGOL
     Route: 058
  46. CIMZIA [Concomitant]
     Active Substance: CERTOLIZUMAB PEGOL
     Route: 058
  47. CORTISONE ACETATE [Concomitant]
     Active Substance: CORTISONE ACETATE
     Indication: Rheumatoid arthritis
     Route: 061
  48. CORTISONE ACETATE [Concomitant]
     Active Substance: CORTISONE ACETATE
     Route: 048
  49. COSENTYX [Concomitant]
     Active Substance: SECUKINUMAB
     Indication: Psoriatic arthropathy
     Route: 005
  50. DESOXIMETASONE [Concomitant]
     Active Substance: DESOXIMETASONE
     Indication: Rheumatoid arthritis
     Route: 048
  51. DESOXIMETASONE [Concomitant]
     Active Substance: DESOXIMETASONE
     Route: 058
  52. DESOXIMETASONE [Concomitant]
     Active Substance: DESOXIMETASONE
     Route: 048
  53. DESOXIMETASONE [Concomitant]
     Active Substance: DESOXIMETASONE
     Route: 048
  54. DESOXIMETASONE [Concomitant]
     Active Substance: DESOXIMETASONE
     Route: 058
  55. DICLOFENAC SODIUM [Concomitant]
     Active Substance: DICLOFENAC\DICLOFENAC SODIUM
     Indication: Product used for unknown indication
     Route: 058
  56. ENBREL [Concomitant]
     Active Substance: ETANERCEPT
     Indication: Rheumatoid arthritis
     Dosage: 5 MONTHS
     Route: 058
  57. ERELZI [Concomitant]
     Active Substance: ETANERCEPT-SZZS
     Indication: Rheumatoid arthritis
     Dosage: 5 MONTHS
     Route: 058
  58. FLUMETHASONE PIVALATE [Concomitant]
     Active Substance: FLUMETHASONE PIVALATE
     Indication: Product used for unknown indication
     Dosage: 5 MONTHS
  59. FLUMETHASONE PIVALATE [Concomitant]
     Active Substance: FLUMETHASONE PIVALATE
     Dosage: 5 MONTHS
     Route: 003
  60. FOLIC ACID [Concomitant]
     Active Substance: FOLIC ACID
     Indication: Rheumatoid arthritis
     Dosage: 5 MONTHS
     Route: 048
  61. FOLIC ACID [Concomitant]
     Active Substance: FOLIC ACID
  62. FOLIC ACID [Concomitant]
     Active Substance: FOLIC ACID
     Route: 048
  63. FOLIC ACID [Concomitant]
     Active Substance: FOLIC ACID
     Route: 048
  64. FOLIC ACID [Concomitant]
     Active Substance: FOLIC ACID
     Route: 048
  65. FOLIC ACID [Concomitant]
     Active Substance: FOLIC ACID
  66. FOLIC ACID [Concomitant]
     Active Substance: FOLIC ACID
     Route: 048
  67. GOLD AU-198 [Concomitant]
     Active Substance: GOLD AU-198
     Indication: Product used for unknown indication
     Dosage: 5 MONTHS
  68. FOSAMAX [Concomitant]
     Active Substance: ALENDRONATE SODIUM
     Indication: Rheumatoid arthritis
     Route: 058
  69. FOSAMAX [Concomitant]
     Active Substance: ALENDRONATE SODIUM
     Route: 048
  70. FOSAMAX [Concomitant]
     Active Substance: ALENDRONATE SODIUM
     Route: 016
  71. FOSAMAX [Concomitant]
     Active Substance: ALENDRONATE SODIUM
     Route: 005
  72. GOLD SODIUM THIOMALATE [Concomitant]
     Active Substance: GOLD SODIUM THIOMALATE
     Indication: Product used for unknown indication
  73. HUMIRA [Concomitant]
     Active Substance: ADALIMUMAB
     Indication: Rheumatoid arthritis
     Route: 058
  74. HUMIRA [Concomitant]
     Active Substance: ADALIMUMAB
     Route: 057
  75. HYDROCORTISONE ACETATE [Concomitant]
     Active Substance: HYDROCORTISONE ACETATE
     Indication: Product used for unknown indication
  76. KEVZARA [Concomitant]
     Active Substance: SARILUMAB
     Indication: Rheumatoid arthritis
  77. LEFLUNOMIDE [Concomitant]
     Active Substance: LEFLUNOMIDE
     Indication: Rheumatoid arthritis
     Route: 048
  78. LEFLUNOMIDE [Concomitant]
     Active Substance: LEFLUNOMIDE
     Route: 048
  79. LEFLUNOMIDE [Concomitant]
     Active Substance: LEFLUNOMIDE
  80. LEFLUNOMIDE [Concomitant]
     Active Substance: LEFLUNOMIDE
  81. LEFLUNOMIDE [Concomitant]
     Active Substance: LEFLUNOMIDE
  82. LEFLUNOMIDE [Concomitant]
     Active Substance: LEFLUNOMIDE
     Route: 048
  83. METHOTREXATE [Concomitant]
     Active Substance: METHOTREXATE
     Indication: Product used for unknown indication
     Route: 048
  84. METHOTREXATE [Concomitant]
     Active Substance: METHOTREXATE
     Route: 058
  85. METHOTREXATE [Concomitant]
     Active Substance: METHOTREXATE
     Route: 048
  86. METHOTREXATE [Concomitant]
     Active Substance: METHOTREXATE
     Dosage: 2 EVERY 1 DAYS
     Route: 048
  87. METHOTREXATE [Concomitant]
     Active Substance: METHOTREXATE
     Route: 048
  88. METHOTREXATE [Concomitant]
     Active Substance: METHOTREXATE
     Route: 013
  89. METHOTREXATE [Concomitant]
     Active Substance: METHOTREXATE
     Route: 016
  90. METHOTREXATE [Concomitant]
     Active Substance: METHOTREXATE
     Dosage: 2 EVERY 1 DAYS
  91. METHOTREXATE [Concomitant]
     Active Substance: METHOTREXATE
     Route: 048
  92. METHOTREXATE [Concomitant]
     Active Substance: METHOTREXATE
     Route: 058
  93. METHOTREXATE [Concomitant]
     Active Substance: METHOTREXATE
     Route: 013
  94. METHOTREXATE [Concomitant]
     Active Substance: METHOTREXATE
     Route: 048
  95. METHOTREXATE [Concomitant]
     Active Substance: METHOTREXATE
     Route: 048
  96. METHOTREXATE [Concomitant]
     Active Substance: METHOTREXATE
  97. MINOCYCLINE HYDROCHLORIDE [Concomitant]
     Active Substance: MINOCYCLINE HYDROCHLORIDE
     Indication: Rheumatoid arthritis
  98. MINOCYCLINE HYDROCHLORIDE [Concomitant]
     Active Substance: MINOCYCLINE HYDROCHLORIDE
     Route: 058
  99. MINOCYCLINE [Concomitant]
     Active Substance: MINOCYCLINE HYDROCHLORIDE
     Indication: Product used for unknown indication
  100. MINOCYCLINE [Concomitant]
     Active Substance: MINOCYCLINE HYDROCHLORIDE
     Route: 058
  101. MINOCYCLINE HYDROCHLORIDE [Concomitant]
     Active Substance: MINOCYCLINE HYDROCHLORIDE
     Indication: Product used for unknown indication
  102. MINOCYCLINE HYDROCHLORIDE [Concomitant]
     Active Substance: MINOCYCLINE HYDROCHLORIDE
     Route: 058
  103. MYOCHRYSINE [Concomitant]
     Active Substance: GOLD SODIUM THIOMALATE
     Indication: Product used for unknown indication
  104. MYOCHRYSINE [Concomitant]
     Active Substance: GOLD SODIUM THIOMALATE
     Route: 058
  105. MYOCHRYSINE [Concomitant]
     Active Substance: GOLD SODIUM THIOMALATE
     Route: 030
  106. PHTHALYLSULFATHIAZOLE [Concomitant]
     Active Substance: PHTHALYLSULFATHIAZOLE
     Indication: Rheumatoid arthritis
     Route: 058
  107. PHTHALYLSULFATHIAZOLE [Concomitant]
     Active Substance: PHTHALYLSULFATHIAZOLE
     Route: 058
  108. PHTHALYLSULFATHIAZOLE [Concomitant]
     Active Substance: PHTHALYLSULFATHIAZOLE
     Dosage: 2 EVERY 1 DAY
     Route: 048
  109. PHTHALYLSULFATHIAZOLE [Concomitant]
     Active Substance: PHTHALYLSULFATHIAZOLE
     Route: 048
  110. PHTHALYLSULFATHIAZOLE [Concomitant]
     Active Substance: PHTHALYLSULFATHIAZOLE
     Route: 042
  111. PHTHALYLSULFATHIAZOLE [Concomitant]
     Active Substance: PHTHALYLSULFATHIAZOLE
  112. HYDROXYCHLOROQUINE DIPHOSPHATE [Concomitant]
     Active Substance: HYDROXYCHLOROQUINE DIPHOSPHATE
     Indication: Rheumatoid arthritis
     Dosage: 4 MONTH
  113. HYDROXYCHLOROQUINE DIPHOSPHATE [Concomitant]
     Active Substance: HYDROXYCHLOROQUINE DIPHOSPHATE
     Route: 058
  114. PREDNISONE [Concomitant]
     Active Substance: PREDNISONE
     Indication: Rheumatoid arthritis
     Dosage: 4 MONTH
     Route: 048
  115. PREDNISONE [Concomitant]
     Active Substance: PREDNISONE
     Route: 058
  116. PREDNISONE [Concomitant]
     Active Substance: PREDNISONE
     Route: 048
  117. PREDNISONE [Concomitant]
     Active Substance: PREDNISONE
     Dosage: 4 MONTH
     Route: 048
  118. PSEUDOEPHEDRINE HYDROCHLORIDE [Concomitant]
     Active Substance: PSEUDOEPHEDRINE HYDROCHLORIDE
     Indication: Rheumatoid arthritis
     Dosage: 4 MONTH
  119. PSEUDOEPHEDRINE HYDROCHLORIDE [Concomitant]
     Active Substance: PSEUDOEPHEDRINE HYDROCHLORIDE
     Route: 058
  120. PSEUDOEPHEDRINE HYDROCHLORIDE [Concomitant]
     Active Substance: PSEUDOEPHEDRINE HYDROCHLORIDE
  121. PSEUDOEPHEDRINE HYDROCHLORIDE [Concomitant]
     Active Substance: PSEUDOEPHEDRINE HYDROCHLORIDE
  122. REMICADE [Concomitant]
     Active Substance: INFLIXIMAB
     Indication: Rheumatoid arthritis
     Dosage: POWDER FOR SOLUTION
     Route: 058
  123. REMICADE [Concomitant]
     Active Substance: INFLIXIMAB
     Dosage: POWDER FOR SOLUTION
     Route: 042
  124. REMICADE [Concomitant]
     Active Substance: INFLIXIMAB
     Route: 042
  125. REMICADE [Concomitant]
     Active Substance: INFLIXIMAB
     Route: 042
  126. REMICADE [Concomitant]
     Active Substance: INFLIXIMAB
     Route: 042
  127. REMICADE [Concomitant]
     Active Substance: INFLIXIMAB
  128. RITUXIMAB [Concomitant]
     Active Substance: RITUXIMAB
     Indication: Rheumatoid arthritis
     Dosage: 4 MONTH
     Route: 041
  129. RITUXIMAB [Concomitant]
     Active Substance: RITUXIMAB
     Route: 058
  130. RITUXIMAB [Concomitant]
     Active Substance: RITUXIMAB
     Route: 042
  131. RITUXIMAB [Concomitant]
     Active Substance: RITUXIMAB
     Route: 043
  132. RITUXIMAB [Concomitant]
     Active Substance: RITUXIMAB
  133. RITUXIMAB [Concomitant]
     Active Substance: RITUXIMAB
  134. RITUXIMAB [Concomitant]
     Active Substance: RITUXIMAB
  135. RITUXIMAB [Concomitant]
     Active Substance: RITUXIMAB
     Route: 016
  136. SULFASALAZINE [Concomitant]
     Active Substance: SULFASALAZINE
     Indication: Rheumatoid arthritis
     Dosage: 4 MONTHS
  137. SARILUMAB [Concomitant]
     Active Substance: SARILUMAB
     Indication: Product used for unknown indication
  138. SIMPONI [Concomitant]
     Active Substance: GOLIMUMAB
     Indication: Rheumatoid arthritis
     Dosage: 334 DAYS
     Route: 058
  139. SIMPONI [Concomitant]
     Active Substance: GOLIMUMAB
     Dosage: 334 DAYS
     Route: 058
  140. SIMPONI [Concomitant]
     Active Substance: GOLIMUMAB
     Dosage: 334 DAYS
  141. SIRUKUMAB [Concomitant]
     Active Substance: SIRUKUMAB
     Indication: Product used for unknown indication
  142. GOLD SODIUM THIOMALATE [Concomitant]
     Active Substance: GOLD SODIUM THIOMALATE
     Indication: Product used for unknown indication
     Route: 048
  143. STELARA [Concomitant]
     Active Substance: USTEKINUMAB
     Indication: Rheumatoid arthritis
     Route: 058
  144. STELARA [Concomitant]
     Active Substance: USTEKINUMAB
  145. SULFASALAZINE [Concomitant]
     Active Substance: SULFASALAZINE
     Indication: Rheumatoid arthritis
     Route: 058
  146. SULFASALAZINE [Concomitant]
     Active Substance: SULFASALAZINE
     Dosage: 2 EVERY 1 DAYS
     Route: 048
  147. SULFASALAZINE [Concomitant]
     Active Substance: SULFASALAZINE
     Dosage: 1 EVERY 1 DAYS
  148. SULFASALAZINE [Concomitant]
     Active Substance: SULFASALAZINE
     Dosage: 2 EVERY 1 DAYS
     Route: 048
  149. SULFASALAZINE [Concomitant]
     Active Substance: SULFASALAZINE
     Dosage: 1 EVERY 1 DAY
     Route: 048
  150. SULFASALAZINE [Concomitant]
     Active Substance: SULFASALAZINE
     Dosage: 2 EVERY 1 DAYS
     Route: 048
  151. SULFASALAZINE [Concomitant]
     Active Substance: SULFASALAZINE
     Dosage: 2 EVERY 1 DAYS
     Route: 058
  152. SULFASALAZINE [Concomitant]
     Active Substance: SULFASALAZINE
     Dosage: 1 EVERY 1 DAYS
     Route: 058
  153. SULFASALAZINE [Concomitant]
     Active Substance: SULFASALAZINE
     Dosage: 1 EVERY 1 DAYS
     Route: 058
  154. SULFASALAZINE [Concomitant]
     Active Substance: SULFASALAZINE
     Dosage: 1 EVERY 1 DAYS
  155. SULFASALAZINE [Concomitant]
     Active Substance: SULFASALAZINE
     Route: 058
  156. SULFASALAZINE [Concomitant]
     Active Substance: SULFASALAZINE
     Route: 058
  157. SULFASALAZINE [Concomitant]
     Active Substance: SULFASALAZINE
     Route: 016
  158. SULFASALAZINE [Concomitant]
     Active Substance: SULFASALAZINE
     Route: 058
  159. TOFACITINIB CITRATE [Concomitant]
     Active Substance: TOFACITINIB CITRATE
     Indication: Rheumatoid arthritis
     Dosage: 1 EVERY 1 DAY
     Route: 048
  160. TOFACITINIB CITRATE [Concomitant]
     Active Substance: TOFACITINIB CITRATE
  161. ADALIMUMAB [Concomitant]
     Active Substance: ADALIMUMAB\ISOPROPYL ALCOHOL
     Indication: Rheumatoid arthritis
     Route: 058
  162. ADALIMUMAB [Concomitant]
     Active Substance: ADALIMUMAB\ISOPROPYL ALCOHOL
  163. ADALIMUMAB [Concomitant]
     Active Substance: ADALIMUMAB\ISOPROPYL ALCOHOL
     Route: 058
  164. AIMOVIG [Concomitant]
     Active Substance: ERENUMAB-AOOE
     Indication: Migraine
  165. AIMOVIG [Concomitant]
     Active Substance: ERENUMAB-AOOE
  166. ALENDRONATE SODIUM\CHOLECALCIFEROL [Concomitant]
     Active Substance: ALENDRONATE SODIUM\CHOLECALCIFEROL
     Indication: Rheumatoid arthritis
  167. ALENDRONIC ACID [Concomitant]
     Active Substance: ALENDRONIC ACID
     Indication: Rheumatoid arthritis
  168. DICLOFENAC SODIUM [Concomitant]
     Active Substance: DICLOFENAC\DICLOFENAC SODIUM
     Indication: Product used for unknown indication
  169. ATOMOXETINE [Concomitant]
     Active Substance: ATOMOXETINE
     Indication: Migraine
     Dosage: 1 EVERY 2 DAYS
  170. BERINERT [Concomitant]
     Active Substance: HUMAN C1-ESTERASE INHIBITOR
     Indication: Product used for unknown indication
  171. BOTULINUM TOXIN TYPE A [Concomitant]
     Active Substance: BOTULINUM TOXIN TYPE A
     Indication: Product used for unknown indication
     Dosage: POWDER FOR SOLUTION
  172. BUTRANS [Concomitant]
     Active Substance: BUPRENORPHINE
     Indication: Product used for unknown indication
     Dosage: PATCH
  173. CALCIUM ASCORBATE [Concomitant]
     Active Substance: CALCIUM ASCORBATE
     Indication: Product used for unknown indication
  174. CALCIUM CARBONATE [Concomitant]
     Active Substance: CALCIUM CARBONATE
     Indication: Product used for unknown indication
  175. CALCIUM GLUBIONATE [Concomitant]
     Active Substance: CALCIUM GLUBIONATE
     Indication: Product used for unknown indication
  176. CALCIUM GLUBIONATE [Concomitant]
     Active Substance: CALCIUM GLUBIONATE
     Route: 016
  177. CANDESARTAN [Concomitant]
     Active Substance: CANDESARTAN
     Indication: Migraine
     Route: 048
  178. CELEBREX [Concomitant]
     Active Substance: CELECOXIB
     Indication: Migraine
     Route: 048
  179. CELEBREX [Concomitant]
     Active Substance: CELECOXIB
  180. CERTOLIZUMAB PEGOL [Concomitant]
     Active Substance: CERTOLIZUMAB PEGOL
     Indication: Product used for unknown indication
     Route: 058
  181. CERTOLIZUMAB PEGOL [Concomitant]
     Active Substance: CERTOLIZUMAB PEGOL
     Indication: Rheumatoid arthritis
     Route: 016
  182. CERTOLIZUMAB PEGOL [Concomitant]
     Active Substance: CERTOLIZUMAB PEGOL
     Route: 005
  183. CETIRIZINE [Concomitant]
     Active Substance: CETIRIZINE HYDROCHLORIDE
     Indication: Rheumatoid arthritis
     Route: 048
  184. CETIRIZINE [Concomitant]
     Active Substance: CETIRIZINE HYDROCHLORIDE
  185. CETIRIZINE [Concomitant]
     Active Substance: CETIRIZINE HYDROCHLORIDE
     Route: 048
  186. CHOLECALCIFEROL [Concomitant]
     Active Substance: CHOLECALCIFEROL
     Indication: Product used for unknown indication
  187. CORTISONE (HYDROCORTISONE) [Concomitant]
     Active Substance: HYDROCORTISONE
     Indication: Rheumatoid arthritis
     Route: 058
  188. DICLOFENAC DIETHYLAMINE [Concomitant]
     Active Substance: DICLOFENAC DIETHYLAMINE
     Indication: Product used for unknown indication
  189. ERENUMAB [Concomitant]
     Active Substance: ERENUMAB
     Indication: Migraine
  190. FLUMETHASONE [Concomitant]
     Active Substance: FLUMETHASONE
     Indication: Product used for unknown indication
  191. GOLIMUMAB [Concomitant]
     Active Substance: GOLIMUMAB
     Indication: Rheumatoid arthritis
     Route: 058
  192. GOLIMUMAB [Concomitant]
     Active Substance: GOLIMUMAB
     Indication: Prostatic specific antigen
  193. HYDROCORTISONE BUTYRATE [Concomitant]
     Active Substance: HYDROCORTISONE BUTYRATE
     Indication: Rheumatoid arthritis
  194. HYDROXYCHLOROQUINE [Concomitant]
     Active Substance: HYDROXYCHLOROQUINE
     Indication: Rheumatoid arthritis
  195. HYDROXYCHLOROQUINE [Concomitant]
     Active Substance: HYDROXYCHLOROQUINE
     Route: 048
  196. HYDROXYCHLOROQUINE [Concomitant]
     Active Substance: HYDROXYCHLOROQUINE
  197. HYDROXYCHLOROQUINE [Concomitant]
     Active Substance: HYDROXYCHLOROQUINE
     Route: 058
  198. HYDROXYCHLOROQUINE [Concomitant]
     Active Substance: HYDROXYCHLOROQUINE
     Route: 048
  199. HYDROXYCHLOROQUINE [Concomitant]
     Active Substance: HYDROXYCHLOROQUINE
     Route: 016
  200. HYDROXYCHLOROQUINE [Concomitant]
     Active Substance: HYDROXYCHLOROQUINE
     Route: 005
  201. HYDROXYCHLOROQUINE [Concomitant]
     Active Substance: HYDROXYCHLOROQUINE
  202. HYDROXYCHLOROQUINE SULFATE [Concomitant]
     Active Substance: HYDROXYCHLOROQUINE SULFATE
     Indication: Rheumatoid arthritis
     Route: 048
  203. HYDROXYCHLOROQUINE SULFATE [Concomitant]
     Active Substance: HYDROXYCHLOROQUINE SULFATE
  204. HYDROXYCHLOROQUINE SULFATE [Concomitant]
     Active Substance: HYDROXYCHLOROQUINE SULFATE
     Route: 048
  205. HYDROXYCHLOROQUINE SULFATE [Concomitant]
     Active Substance: HYDROXYCHLOROQUINE SULFATE
     Route: 005
  206. HYDROXYCHLOROQUINE SULFATE [Concomitant]
     Active Substance: HYDROXYCHLOROQUINE SULFATE
  207. INFLIXIMAB [Concomitant]
     Active Substance: INFLIXIMAB
     Indication: Rheumatoid arthritis
     Route: 042
  208. LAMICTAL [Concomitant]
     Active Substance: LAMOTRIGINE
     Indication: Product used for unknown indication
     Dosage: 1 EVERY 2 DAYS
     Route: 048
  209. LAMICTAL [Concomitant]
     Active Substance: LAMOTRIGINE
     Dosage: 1 EVERY 2 DAYS
     Route: 048
  210. MAGNESIUM CITRATE [Concomitant]
     Active Substance: MAGNESIUM CITRATE
     Indication: Product used for unknown indication
  211. METHYLPREDNISOLONE SODIUM SUCCINATE [Concomitant]
     Active Substance: METHYLPREDNISOLONE SODIUM SUCCINATE
     Indication: Product used for unknown indication
  212. MYRBETRIQ [Concomitant]
     Active Substance: MIRABEGRON
     Indication: Product used for unknown indication
     Dosage: TABLET (EXTENDED- RELEASE), 1 EVERY 2 DAYS
  213. MYRBETRIQ [Concomitant]
     Active Substance: MIRABEGRON
  214. NAPROXEN [Concomitant]
     Active Substance: NAPROXEN
     Indication: Product used for unknown indication
  215. NAPROXEN SODIUM [Concomitant]
     Active Substance: NAPROXEN SODIUM
     Indication: Rheumatoid arthritis
  216. NUCALA [Concomitant]
     Active Substance: MEPOLIZUMAB
     Indication: Product used for unknown indication
  217. OXYCODONE [Concomitant]
     Active Substance: OXYCODONE
     Indication: Product used for unknown indication
  218. OXYCODONE TEREPHTHALATE [Concomitant]
     Active Substance: OXYCODONE TEREPHTHALATE
     Indication: Product used for unknown indication
  219. PHENYLEPHRINE HYDROCHLORIDE [Concomitant]
     Active Substance: PHENYLEPHRINE HYDROCHLORIDE
     Indication: Rheumatoid arthritis
  220. RANITIDINE [Concomitant]
     Active Substance: RANITIDINE
     Indication: Product used for unknown indication
  221. RAMIPRIL [Concomitant]
     Active Substance: RAMIPRIL
     Indication: Rheumatoid arthritis
     Route: 016
  222. RAMIPRIL [Concomitant]
     Active Substance: RAMIPRIL
     Route: 042
  223. CETIRIZINE HYDROCHLORIDE\PSEUDOEPHEDRINE HYDROCHLORIDE [Concomitant]
     Active Substance: CETIRIZINE HYDROCHLORIDE\PSEUDOEPHEDRINE HYDROCHLORIDE
     Indication: Rheumatoid arthritis
     Route: 042
  224. CETIRIZINE HYDROCHLORIDE\PSEUDOEPHEDRINE HYDROCHLORIDE [Concomitant]
     Active Substance: CETIRIZINE HYDROCHLORIDE\PSEUDOEPHEDRINE HYDROCHLORIDE
  225. CETIRIZINE HYDROCHLORIDE\PSEUDOEPHEDRINE HYDROCHLORIDE [Concomitant]
     Active Substance: CETIRIZINE HYDROCHLORIDE\PSEUDOEPHEDRINE HYDROCHLORIDE
     Dosage: TABLET (EXTENDED- RELEASE)
  226. CETIRIZINE HYDROCHLORIDE\PSEUDOEPHEDRINE HYDROCHLORIDE [Concomitant]
     Active Substance: CETIRIZINE HYDROCHLORIDE\PSEUDOEPHEDRINE HYDROCHLORIDE
  227. DIETARY SUPPLEMENT [Concomitant]
     Active Substance: DIETARY SUPPLEMENT
     Indication: Product used for unknown indication
  228. TOCILIZUMAB [Concomitant]
     Active Substance: TOCILIZUMAB
     Indication: Rheumatoid arthritis
     Route: 058
  229. TOCILIZUMAB [Concomitant]
     Active Substance: TOCILIZUMAB
     Route: 042
  230. TOCILIZUMAB [Concomitant]
     Active Substance: TOCILIZUMAB
  231. TOCILIZUMAB [Concomitant]
     Active Substance: TOCILIZUMAB
     Route: 058
  232. TOCILIZUMAB [Concomitant]
     Active Substance: TOCILIZUMAB
     Route: 042
  233. TOFACITINIB [Concomitant]
     Active Substance: TOFACITINIB
     Indication: Rheumatoid arthritis
     Dosage: 2 EVERY 1 DAY
     Route: 048
  234. TOPIRAMATE [Concomitant]
     Active Substance: TOPIRAMATE
     Indication: Product used for unknown indication
     Dosage: 1 EVERY 1 DAY
  235. TOPIRAMATE [Concomitant]
     Active Substance: TOPIRAMATE
     Dosage: 1 EVERY 2 DAYS
  236. TOPIRAMATE [Concomitant]
     Active Substance: TOPIRAMATE
     Dosage: 1 EVERY 1 DAY
  237. TRAMADOL HYDROCHLORIDE [Concomitant]
     Active Substance: TRAMADOL HYDROCHLORIDE
     Indication: Product used for unknown indication
  238. USTEKINUMAB [Concomitant]
     Active Substance: USTEKINUMAB
     Indication: Product used for unknown indication
     Route: 058
  239. VITAMIN C [Concomitant]
     Active Substance: ASCORBIC ACID
     Indication: Product used for unknown indication
  240. XELJANZ [Concomitant]
     Active Substance: TOFACITINIB CITRATE
     Indication: Rheumatoid arthritis
     Dosage: 2 EVERY 1 DAY
  241. XELJANZ [Concomitant]
     Active Substance: TOFACITINIB CITRATE
  242. XELJANZ [Concomitant]
     Active Substance: TOFACITINIB CITRATE
  243. XELJANZ [Concomitant]
     Active Substance: TOFACITINIB CITRATE
     Dosage: 2 EVERY 1 DAY
     Route: 048
  244. TRIAMCINOLONE ACETONIDE [Concomitant]
     Active Substance: TRIAMCINOLONE ACETONIDE
     Indication: Rheumatoid arthritis
     Route: 014
  245. DICLOFENAC DIETHYLAMINE [Concomitant]
     Active Substance: DICLOFENAC DIETHYLAMINE
     Indication: Product used for unknown indication
  246. MEGLUMINE [Concomitant]
     Active Substance: MEGLUMINE
     Indication: Product used for unknown indication
     Route: 042
  247. AZATHIOPRINE SODIUM [Concomitant]
     Active Substance: AZATHIOPRINE SODIUM
     Indication: Product used for unknown indication
  248. DOMPERIDONE MALEATE [Concomitant]
     Active Substance: DOMPERIDONE MALEATE
     Indication: Product used for unknown indication
  249. SULFATHIAZOLE [Concomitant]
     Active Substance: SULFATHIAZOLE
     Indication: Product used for unknown indication
  250. CALCIUM CITRATE [Concomitant]
     Active Substance: CALCIUM CITRATE
     Indication: Product used for unknown indication

REACTIONS (1)
  - Death [Fatal]
